FAERS Safety Report 8091402-3 (Version None)
Quarter: 2012Q1

REPORT INFORMATION
  Report Type: 
  Country: None (occurrence: None)
  Receive Date: 20120129
  Receipt Date: 20111117
  Transmission Date: 20120608
  Serious: No
  Sender: FDA-Public Use
  Company Number: US-ABBOTT-10P-163-0647331-00

PATIENT
  Age: 46 Year
  Sex: Female

DRUGS (35)
  1. HYDROCHLOROTHIAZIDE [Concomitant]
     Indication: FLUID RETENTION
     Dosage: 1/2 TABLET AS NEEDED
  2. PREMARIN [Concomitant]
     Dosage: DAILY
     Route: 048
  3. HUMIRA [Suspect]
     Dates: start: 20080401
  4. GEMFIBROZIL [Concomitant]
     Indication: LIPIDS INCREASED
     Dosage: BID
  5. SKELAXIN [Concomitant]
     Indication: MUSCLE SPASMS
     Dosage: 2 800 MG  DAILY
     Route: 048
  6. ARAVA [Concomitant]
     Indication: RHEUMATOID ARTHRITIS
  7. HYDROCODONE BITARTRATE [Concomitant]
     Indication: BREAKTHROUGH PAIN
     Dosage: 10/325 1-2
  8. PROAIR HFA [Concomitant]
     Indication: DYSPNOEA
     Dosage: PRN
     Route: 055
  9. MAGNESIUM [Concomitant]
     Indication: THYROID DISORDER
     Dosage: BID
  10. LAMICTAL [Concomitant]
     Indication: BIPOLAR DISORDER
     Dosage: DAILY
     Route: 048
  11. NEURONTIN [Concomitant]
     Indication: PRODUCT USED FOR UNKNOWN INDICATION
  12. ZYPREXA [Concomitant]
     Indication: BIPOLAR I DISORDER
  13. CALCIUM + VITAMIN D [Concomitant]
     Indication: PRODUCT USED FOR UNKNOWN INDICATION
  14. EFFEXOR XR [Concomitant]
     Indication: BIPOLAR DISORDER
     Route: 048
  15. SOY ISOFLAVONOID [Concomitant]
     Indication: PRODUCT USED FOR UNKNOWN INDICATION
     Dosage: DAILY
     Route: 048
  16. SALAGEN [Concomitant]
     Indication: DRY MOUTH
  17. RELAFEN [Concomitant]
     Indication: PRODUCT USED FOR UNKNOWN INDICATION
  18. FISH OIL [Concomitant]
     Indication: EYE DISORDER
  19. ALIGN [Concomitant]
     Indication: IRRITABLE BOWEL SYNDROME
     Dosage: PROBIOTIC QD
  20. ZANAFLEX [Concomitant]
     Indication: PRODUCT USED FOR UNKNOWN INDICATION
     Dosage: 4-8 MG 5 TABS DAILY
     Route: 048
  21. RESTORIL [Concomitant]
     Indication: INSOMNIA
     Dosage: @HS
     Route: 048
  22. LYSINE [Concomitant]
     Indication: PRODUCT USED FOR UNKNOWN INDICATION
     Dosage: DAILY
     Route: 048
  23. HUMIRA [Suspect]
     Indication: RHEUMATOID ARTHRITIS
     Dates: start: 20090501
  24. TOPAMAX [Concomitant]
     Indication: FIBROMYALGIA
  25. OMEPRAZOLE [Concomitant]
     Indication: GASTROOESOPHAGEAL REFLUX DISEASE
  26. CELEXA [Concomitant]
     Indication: PRODUCT USED FOR UNKNOWN INDICATION
  27. PLAQUENIL [Concomitant]
     Indication: PRODUCT USED FOR UNKNOWN INDICATION
  28. TRAZODONE HCL [Concomitant]
     Indication: PRODUCT USED FOR UNKNOWN INDICATION
     Dosage: 1/2 PM
  29. FLUTICASONE PROPIONATE [Concomitant]
     Indication: NASAL INFLAMMATION
     Dosage: SPRAY 2 SHOTS
     Route: 045
  30. VITAMIN D [Concomitant]
     Indication: PRODUCT USED FOR UNKNOWN INDICATION
     Dosage: BID
  31. MULTI-VITAMIN [Concomitant]
     Indication: PRODUCT USED FOR UNKNOWN INDICATION
  32. PROPRANOLOL [Concomitant]
     Indication: PRODUCT USED FOR UNKNOWN INDICATION
     Dosage: DAILY
     Route: 048
  33. PREDNISONE TAB [Concomitant]
     Indication: PRODUCT USED FOR UNKNOWN INDICATION
     Dosage: DAILY
     Route: 048
  34. ZINC SULFATE [Concomitant]
     Indication: PRODUCT USED FOR UNKNOWN INDICATION
     Dosage: DAILY
     Route: 048
  35. ASCORBIC ACID [Concomitant]
     Indication: PRODUCT USED FOR UNKNOWN INDICATION
     Dosage: DAILY
     Route: 048

REACTIONS (8)
  - WRONG TECHNIQUE IN DRUG USAGE PROCESS [None]
  - HYPERTENSION [None]
  - PAIN [None]
  - INJECTION SITE DISCOLOURATION [None]
  - BLOOD CHOLESTEROL INCREASED [None]
  - INJECTION SITE HAEMATOMA [None]
  - DRUG INEFFECTIVE [None]
  - ARTHRALGIA [None]
